FAERS Safety Report 5006043-1 (Version None)
Quarter: 2006Q1

REPORT INFORMATION
  Report Type: 
  Country: None (occurrence: None)
  Receive Date: 20060320
  Receipt Date: 20050516
  Transmission Date: 20060701
  Serious: Yes (Hospitalization, Disabling, Other)
  Sender: FDA-Public Use
  Company Number: 2002-12-0467

PATIENT
  Age: 46 Year
  Sex: Male
  Weight: 69.4003 kg

DRUGS (24)
  1. PEG-INTRON [Suspect]
     Indication: HEPATITIS C
     Dosage: SEE IMAGE
     Route: 058
     Dates: start: 20011214, end: 20020106
  2. PEG-INTRON [Suspect]
     Indication: HEPATITIS C
     Dosage: SEE IMAGE
     Route: 058
     Dates: start: 20020107, end: 20020310
  3. PEG-INTRON [Suspect]
     Indication: HEPATITIS C
     Dosage: SEE IMAGE
     Route: 058
     Dates: start: 20011214, end: 20021129
  4. PEG-INTRON [Suspect]
     Indication: HEPATITIS C
     Dosage: SEE IMAGE
     Route: 058
     Dates: end: 20021129
  5. PEG-INTRON [Suspect]
     Indication: HEPATITIS C
     Dosage: SEE IMAGE
     Route: 058
     Dates: start: 20020311
  6. PROCRIT [Concomitant]
  7. LORTAB [Concomitant]
  8. LEXAPRO [Concomitant]
  9. FOSAMAX [Concomitant]
  10. KEFLEX [Concomitant]
  11. PROTONIX [Concomitant]
  12. AMARYL [Concomitant]
  13. SYNTHROID [Concomitant]
  14. REMERON [Concomitant]
  15. NOVOLOG [Concomitant]
  16. LANTUS [Concomitant]
  17. FORADIL [Concomitant]
  18. GUAIFENEX (PHENYLPROPANOLAMINE/PHENYLEPHRINE/GUAIFENESIN) [Concomitant]
  19. UNIPHYL [Concomitant]
  20. PROZAC [Concomitant]
  21. ATIVAN [Concomitant]
  22. TARAX [Concomitant]
  23. DARVOCET [Concomitant]
  24. PROVIGIL [Concomitant]

REACTIONS (37)
  - ABDOMINAL DISTENSION [None]
  - ANAEMIA [None]
  - ARTHRALGIA [None]
  - ASTHENIA [None]
  - BLOOD PRESSURE INCREASED [None]
  - CANDIDIASIS [None]
  - CARDIAC ENZYMES INCREASED [None]
  - CHILLS [None]
  - CONTUSION [None]
  - COUGH [None]
  - DEPRESSION [None]
  - DERMATITIS [None]
  - DIARRHOEA [None]
  - DIZZINESS [None]
  - DYSPNOEA [None]
  - FATIGUE [None]
  - GRAND MAL CONVULSION [None]
  - HAEMOPTYSIS [None]
  - HALLUCINATION [None]
  - HEADACHE [None]
  - HYPOKALAEMIA [None]
  - HYPOXIA [None]
  - INJECTION SITE INFECTION [None]
  - INSOMNIA [None]
  - MEMORY IMPAIRMENT [None]
  - MOUTH ULCERATION [None]
  - MUSCLE SPASMS [None]
  - MYALGIA [None]
  - NERVOUSNESS [None]
  - OEDEMA PERIPHERAL [None]
  - PANCYTOPENIA [None]
  - PETIT MAL EPILEPSY [None]
  - PNEUMONIA [None]
  - PYREXIA [None]
  - RENAL FAILURE [None]
  - RESPIRATORY DISTRESS [None]
  - RHABDOMYOLYSIS [None]
